FAERS Safety Report 21438891 (Version 1)
Quarter: 2022Q4

REPORT INFORMATION
  Report Type: Spontaneous
  Country: US (occurrence: US)
  Receive Date: 20221011
  Receipt Date: 20221011
  Transmission Date: 20230112
  Serious: Yes (Other)
  Sender: FDA-Public Use
  Company Number: US-NOVARTISPH-NVSC2022US224860

PATIENT
  Age: 82 Year
  Sex: Female

DRUGS (1)
  1. KETOROLAC TROMETHAMINE [Suspect]
     Active Substance: KETOROLAC TROMETHAMINE
     Indication: Product used for unknown indication
     Dosage: UNK (PATIENT ONLY ADMINISTERED IT ONE TIME ON HER LEFT EYE)
     Route: 047
     Dates: start: 20220928, end: 20220928

REACTIONS (6)
  - Blindness [Unknown]
  - Abnormal sensation in eye [Unknown]
  - Swelling face [Unknown]
  - Migraine [Unknown]
  - Generalised oedema [Unknown]
  - Eye pain [Unknown]

NARRATIVE: CASE EVENT DATE: 20220928
